FAERS Safety Report 25341174 (Version 1)
Quarter: 2025Q2

REPORT INFORMATION
  Report Type: Spontaneous
  Country: AF (occurrence: AF)
  Receive Date: 20250521
  Receipt Date: 20250521
  Transmission Date: 20250717
  Serious: Yes (Life-Threatening, Hospitalization, Other)
  Sender: RANBAXY
  Company Number: AF-SUN PHARMACEUTICAL INDUSTRIES LTD-2025R1-507820

PATIENT
  Age: 10 Year
  Sex: Male

DRUGS (10)
  1. PROPOFOL [Suspect]
     Active Substance: PROPOFOL
     Indication: Sedation
     Route: 065
  2. MIDAZOLAM [Suspect]
     Active Substance: MIDAZOLAM
     Indication: Sedation
     Route: 065
  3. DIAZEPAM [Suspect]
     Active Substance: DIAZEPAM
     Indication: Tetanus
     Route: 042
  4. PHENOBARBITAL [Suspect]
     Active Substance: PHENOBARBITAL
     Indication: Tetanus
     Route: 042
  5. MORPHINE [Suspect]
     Active Substance: MORPHINE
     Indication: Tetanus
     Route: 065
  6. VECURONIUM [Suspect]
     Active Substance: VECURONIUM BROMIDE
     Indication: Tetanus
     Route: 065
  7. MAGNESIUM SULFATE [Suspect]
     Active Substance: MAGNESIUM SULFATE
     Indication: Tetanus
     Route: 065
  8. LABETALOL [Suspect]
     Active Substance: LABETALOL
     Indication: Tetanus
     Route: 065
  9. CLONIDINE [Suspect]
     Active Substance: CLONIDINE
     Indication: Tetanus
     Route: 065
  10. BACLOFEN [Suspect]
     Active Substance: BACLOFEN
     Indication: Tetanus
     Route: 065

REACTIONS (5)
  - Acute respiratory distress syndrome [Recovering/Resolving]
  - Haemodynamic instability [Recovering/Resolving]
  - Urinary tract infection [Recovering/Resolving]
  - Tracheostomy infection [Recovering/Resolving]
  - Pneumonia [Recovering/Resolving]
